FAERS Safety Report 9310384 (Version 2)
Quarter: 2013Q2

REPORT INFORMATION
  Report Type: Spontaneous
  Country: CL (occurrence: CL)
  Receive Date: 20130527
  Receipt Date: 20130603
  Transmission Date: 20140414
  Serious: Yes (Other)
  Sender: FDA-Public Use
  Company Number: CL-BRISTOL-MYERS SQUIBB COMPANY-17168303

PATIENT
  Age: 57 Year
  Sex: Female

DRUGS (9)
  1. ORENCIA [Suspect]
     Indication: RHEUMATOID ARTHRITIS
     Dates: start: 20110811
  2. PREDNISONE [Concomitant]
  3. TRAMADOL [Concomitant]
  4. CELEBRA [Concomitant]
  5. ACETAMINOPHEN [Concomitant]
  6. BROMHEXINE [Concomitant]
  7. PARACETAMOL [Concomitant]
  8. INSULIN [Concomitant]
  9. GEMFIBROZIL [Concomitant]

REACTIONS (3)
  - Diabetic coma [Recovering/Resolving]
  - Ear pain [Unknown]
  - Nasopharyngitis [Not Recovered/Not Resolved]
